FAERS Safety Report 13117031 (Version 9)
Quarter: 2017Q3

REPORT INFORMATION
  Report Type: Spontaneous
  Country: US (occurrence: US)
  Receive Date: 20170116
  Receipt Date: 20170810
  Transmission Date: 20171127
  Serious: Yes (Death, Congenital Anomaly, Other)
  Sender: FDA-Public Use
  Company Number: PHEH2017US001482

PATIENT
  Sex: Male

DRUGS (2)
  1. ZOFRAN [Suspect]
     Active Substance: ONDANSETRON HYDROCHLORIDE
     Indication: FOETAL EXPOSURE DURING PREGNANCY
     Dosage: MOTHER^S DOSE: 8 MG, QD
     Route: 064
  2. ZOFRAN ODT [Suspect]
     Active Substance: ONDANSETRON HYDROCHLORIDE
     Indication: FOETAL EXPOSURE DURING PREGNANCY
     Dosage: MOTHER^S DOSE: 04 MG, ONCE DAILY (QD)
     Route: 064

REACTIONS (26)
  - Left ventricular hypertrophy [Unknown]
  - Foetal exposure during pregnancy [Unknown]
  - Malnutrition [Unknown]
  - Anaemia neonatal [Unknown]
  - Patent ductus arteriosus [Unknown]
  - Right ventricular dilatation [Unknown]
  - Neonatal hyponatraemia [Unknown]
  - Death neonatal [Fatal]
  - Pulmonary valve incompetence [Unknown]
  - Neonatal respiratory distress syndrome [Unknown]
  - Hyperbilirubinaemia neonatal [Unknown]
  - Tricuspid valve incompetence [Unknown]
  - Atelectasis neonatal [Unknown]
  - Sepsis neonatal [Unknown]
  - Neonatal hypocalcaemia [Unknown]
  - Atrial septal defect [Unknown]
  - Double outlet right ventricle [Unknown]
  - Ventricular septal defect [Unknown]
  - Low birth weight baby [Unknown]
  - Neonatal tachypnoea [Unknown]
  - Mitral valve incompetence [Unknown]
  - Aorta hypoplasia [Unknown]
  - Hypospadias [Unknown]
  - Transposition of the great vessels [Unknown]
  - Premature baby [Unknown]
  - Cardiac murmur [Unknown]

NARRATIVE: CASE EVENT DATE: 20131208
